FAERS Safety Report 10201783 (Version 1)
Quarter: 2014Q2

REPORT INFORMATION
  Report Type: Spontaneous
  Country: US (occurrence: US)
  Receive Date: 20140528
  Receipt Date: 20140528
  Transmission Date: 20141212
  Serious: No
  Sender: FDA-Public Use
  Company Number: US-BRISTOL-MYERS SQUIBB COMPANY-19139245

PATIENT
  Sex: 0

DRUGS (4)
  1. METFORMIN HCL [Suspect]
  2. LEVEMIR [Suspect]
  3. VICTOZA [Suspect]
  4. GLUCOTROL [Suspect]

REACTIONS (1)
  - Peripheral swelling [Unknown]
